FAERS Safety Report 4522425-6 (Version None)
Quarter: 2004Q4

REPORT INFORMATION
  Report Type: 
  Country: None (occurrence: None)
  Receive Date: 20041207
  Receipt Date: 20041125
  Transmission Date: 20050328
  Serious: Yes (Hospitalization)
  Sender: FDA-Public Use
  Company Number: ZONI002050

PATIENT
  Age: 62 Year
  Sex: Male

DRUGS (7)
  1. EXCEGRAN (ZONISAMIDE) [Suspect]
     Indication: CONVULSION
     Dosage: 200 MG, 1 IN 1 D, ORAL
     Route: 048
     Dates: start: 20040901, end: 20041025
  2. ASPIRIN [Suspect]
     Indication: CEREBRAL INFARCTION
     Dosage: 100 MG , 1 IN 1 D, ORAL
     Route: 048
     Dates: start: 20040614, end: 20040925
  3. KAMAG G (MAGNESIUM OXIDE) [Concomitant]
  4. MOHRUS (KETOPROFEN) [Concomitant]
  5. ENSCHENT (CLOTRIMAZOLE) [Concomitant]
  6. KERATINAMIN (UREA) [Concomitant]
  7. SENNARIDE (SENNOSIDE A+B) [Concomitant]

REACTIONS (4)
  - LEUKOPENIA [None]
  - MALAISE [None]
  - NEUTROPHIL PERCENTAGE DECREASED [None]
  - PNEUMONIA [None]
